FAERS Safety Report 8709634 (Version 5)
Quarter: 2014Q4

REPORT INFORMATION
  Report Type: Report from Study
  Country: DE (occurrence: DE)
  Receive Date: 20120806
  Receipt Date: 20141119
  Transmission Date: 20150529
  Serious: Yes (Hospitalization, Other)
  Sender: FDA-Public Use
  Company Number: DE-GLAXOSMITHKLINE-B0813683B

PATIENT
  Age: 46 Year
  Sex: Female
  Weight: 50 kg

DRUGS (4)
  1. BLINDED TRIAL MEDICATION [Suspect]
     Active Substance: INVESTIGATIONAL PRODUCT
     Dosage: 800 MG, QD
     Route: 048
     Dates: start: 20120725, end: 20120813
  2. TOPOTECAN HYDROCHLORIDE. [Suspect]
     Active Substance: TOPOTECAN HYDROCHLORIDE
     Indication: OVARIAN CANCER RECURRENT
     Dosage: 1.25 MG, EVERY THREE WEEKS
     Route: 042
     Dates: start: 20120514
  3. BLINDED TRIAL MEDICATION [Suspect]
     Active Substance: INVESTIGATIONAL PRODUCT
     Indication: OVARIAN CANCER RECURRENT
     Dosage: 800 MG, QD
     Route: 048
     Dates: start: 20120514
  4. TOPOTECAN HYDROCHLORIDE. [Suspect]
     Active Substance: TOPOTECAN HYDROCHLORIDE
     Dosage: 1.25 MG, EVERY THREE WEEKS
     Route: 042
     Dates: start: 20120709, end: 20120713

REACTIONS (2)
  - General physical health deterioration [Recovered/Resolved]
  - Ileus [Recovered/Resolved]

NARRATIVE: CASE EVENT DATE: 20120709
